FAERS Safety Report 15049582 (Version 2)
Quarter: 2019Q3

REPORT INFORMATION
  Report Type: Spontaneous
  Country: CA (occurrence: CA)
  Receive Date: 20180622
  Receipt Date: 20190705
  Transmission Date: 20191004
  Serious: Yes (Other)
  Sender: FDA-Public Use
  Company Number: CA-TEVA-2018-CA-909748

PATIENT
  Age: 21 Year
  Sex: Male

DRUGS (6)
  1. GABAPENTIN. [Suspect]
     Active Substance: GABAPENTIN
     Indication: EPILEPSY
  2. LEVETIRACETAM. [Suspect]
     Active Substance: LEVETIRACETAM
     Indication: EPILEPSY
     Route: 048
  3. NEURONTIN [Concomitant]
     Active Substance: GABAPENTIN
  4. GABAPENTIN. [Suspect]
     Active Substance: GABAPENTIN
     Indication: SEIZURE
     Route: 048
  5. KEPPRA [Concomitant]
     Active Substance: LEVETIRACETAM
  6. BANZEL [Concomitant]
     Active Substance: RUFINAMIDE

REACTIONS (2)
  - Seizure [Unknown]
  - Drug ineffective [Unknown]
